FAERS Safety Report 10618947 (Version 2)
Quarter: 2014Q4

REPORT INFORMATION
  Report Type: Spontaneous
  Country: GB (occurrence: None)
  Receive Date: 20141126
  Receipt Date: 20141219
  Transmission Date: 20150529
  Serious: Yes (Other)
  Sender: FDA-Public Use
  Company Number: GB-DEXPHARM-20140905

PATIENT
  Age: 54 Year
  Sex: Male

DRUGS (4)
  1. VOLTAROL [Suspect]
     Active Substance: DICLOFENAC SODIUM
     Indication: INTERVERTEBRAL DISC DEGENERATION
     Route: 048
  2. DICLOFENAC ACTIVE SUBSTANCES: DICLOFENAC [Suspect]
     Active Substance: DICLOFENAC
     Indication: PRODUCT USED FOR UNKNOWN INDICATION
  3. FENTANYL. [Concomitant]
     Active Substance: FENTANYL
  4. VOLTAROL [Suspect]
     Active Substance: DICLOFENAC SODIUM
     Indication: PAIN IN EXTREMITY
     Route: 048

REACTIONS (8)
  - Muscle twitching [None]
  - Aortic valve disease [None]
  - Cardiac disorder [None]
  - Nausea [None]
  - Bundle branch block right [None]
  - Muscle spasms [None]
  - Drug ineffective [None]
  - Myocardial infarction [None]

NARRATIVE: CASE EVENT DATE: 1999
